FAERS Safety Report 8832198 (Version 1)
Quarter: 2012Q4

REPORT INFORMATION
  Report Type: 
  Country: US (occurrence: US)
  Receive Date: 20121009
  Receipt Date: 20121009
  Transmission Date: 20130627
  Serious: No
  Sender: FDA-Public Use
  Company Number: US-ASTRAZENECA-2012SE76136

PATIENT
  Age: 4 Year
  Sex: Female
  Weight: 14.1 kg

DRUGS (3)
  1. SYMBICORT PMDI [Suspect]
     Indication: WHEEZING
     Dosage: 160/4.5 MCG, 1ST THREE DAYS DAYS TWO PUFFS EVERY SIX TO EIGHT HOURS
     Route: 055
  2. SYMBICORT PMDI [Suspect]
     Indication: WHEEZING
     Dosage: 160/4.5 MCG, NEXT THREE DAYS TWO PUFFS BID
     Route: 055
  3. SYMBICORT PMDI [Suspect]
     Indication: WHEEZING
     Dosage: 160/45MCG, LAST THREE DAYS TWO PUFFS IN THE AM
     Route: 055

REACTIONS (3)
  - Wheezing [Recovered/Resolved]
  - Off label use [Recovered/Resolved]
  - Off label use [Recovered/Resolved]
